FAERS Safety Report 18101764 (Version 2)
Quarter: 2020Q3

REPORT INFORMATION
  Report Type: Spontaneous
  Country: US (occurrence: US)
  Receive Date: 20200802
  Receipt Date: 20200810
  Transmission Date: 20201103
  Serious: No
  Sender: FDA-Public Use
  Company Number: US-SA-2020SA147712

PATIENT

DRUGS (1)
  1. FABRAZYME [Suspect]
     Active Substance: AGALSIDASE BETA
     Indication: FABRY^S DISEASE
     Dosage: 55 MG, QOW
     Route: 042
     Dates: start: 20200330

REACTIONS (10)
  - Gastrointestinal disorder [Unknown]
  - Nausea [Unknown]
  - Burning sensation [Unknown]
  - Body temperature increased [Unknown]
  - Pain [Unknown]
  - Protein urine present [Unknown]
  - Vomiting [Unknown]
  - Abdominal pain [Unknown]
  - Muscle spasms [Unknown]
  - Pyrexia [Unknown]
